FAERS Safety Report 20606276 (Version 1)
Quarter: 2022Q1

REPORT INFORMATION
  Report Type: Spontaneous
  Country: ES (occurrence: ES)
  Receive Date: 20220317
  Receipt Date: 20220317
  Transmission Date: 20220423
  Serious: Yes (Life-Threatening)
  Sender: FDA-Public Use
  Company Number: None

PATIENT
  Age: 58 Year
  Sex: Male
  Weight: 83 kg

DRUGS (10)
  1. BORTEZOMIB [Suspect]
     Active Substance: BORTEZOMIB
     Indication: Plasma cell myeloma
     Route: 058
     Dates: start: 20211022
  2. LENALIDOMIDE [Suspect]
     Active Substance: LENALIDOMIDE
     Indication: Plasma cell myeloma
     Dosage: 25.0 MG A-CO
     Route: 048
     Dates: start: 20211022
  3. BELANTAMAB MAFODOTIN [Suspect]
     Active Substance: BELANTAMAB MAFODOTIN
     Indication: Plasma cell myeloma
     Route: 042
     Dates: start: 20211022
  4. ACYCLOVIR [Concomitant]
     Active Substance: ACYCLOVIR
     Indication: Plasma cell myeloma
     Dosage: 400.0 MG C/12 H
     Route: 048
     Dates: start: 20211022
  5. OMEPRAZOLE [Concomitant]
     Active Substance: OMEPRAZOLE
     Indication: Plasma cell myeloma
     Dosage: 20.0 MG A-DE
     Dates: start: 20211023
  6. ACETAMINOPHEN [Concomitant]
     Active Substance: ACETAMINOPHEN
     Indication: Plasma cell myeloma
     Dosage: 1.0 G DECOCE
     Route: 048
     Dates: start: 20211022
  7. CALCIUM CARBONATE [Concomitant]
     Active Substance: CALCIUM CARBONATE
     Indication: Plasma cell myeloma
     Dosage: 1250.0 MG CE
     Route: 048
     Dates: start: 20220124
  8. ASPIRIN [Concomitant]
     Active Substance: ASPIRIN
     Indication: Plasma cell myeloma
     Dosage: 100.0 MG DE
     Route: 048
     Dates: start: 20211023
  9. LORMETAZEPAM STADA 1 mg COMPRIMIDOS EFG, 30 comprimidos [Concomitant]
     Indication: Insomnia
     Dosage: 1.0 MG C/24 H NOC
     Route: 048
     Dates: start: 20211129
  10. FML 1 mg/ml colirio en suspensi?n, 1 envase cuentagotas de 5 ml [Concomitant]
     Indication: Keratitis
     Dosage: 1.0 GTS C/6 HORAS
     Route: 047
     Dates: start: 20220111, end: 20220210

REACTIONS (2)
  - Thrombosis [Recovering/Resolving]
  - Interstitial lung disease [Recovering/Resolving]

NARRATIVE: CASE EVENT DATE: 20220131
